FAERS Safety Report 19298654 (Version 2)
Quarter: 2021Q3

REPORT INFORMATION
  Report Type: Spontaneous
  Country: US (occurrence: US)
  Receive Date: 20210525
  Receipt Date: 20210708
  Transmission Date: 20211014
  Serious: No
  Sender: FDA-Public Use
  Company Number: US-ALNYLAM PHARMACEUTICALS, INC.-ALN-2021-001187

PATIENT

DRUGS (7)
  1. MIDODRINE [Concomitant]
     Active Substance: MIDODRINE
     Indication: PROPHYLAXIS
     Dosage: 10 MILLIGRAM, 2 HOURS PRIOR
  2. PARACETAMOL [Concomitant]
     Active Substance: ACETAMINOPHEN
     Indication: PROPHYLAXIS
     Dosage: 500 MILLIGRAM
  3. ONPATTRO [Suspect]
     Active Substance: PATISIRAN SODIUM
     Indication: AMYLOIDOSIS SENILE
     Route: 042
  4. ONPATTRO [Suspect]
     Active Substance: PATISIRAN SODIUM
     Indication: NEUROPATHY PERIPHERAL
  5. DIPHENHYDRAMINE. [Concomitant]
     Active Substance: DIPHENHYDRAMINE
     Indication: PROPHYLAXIS
     Dosage: 25 MILLIGRAM
  6. DEXAMETHASONE. [Concomitant]
     Active Substance: DEXAMETHASONE
     Indication: PROPHYLAXIS
     Dosage: 10 MILLIGRAM
     Route: 042
  7. FAMOTIDINE. [Concomitant]
     Active Substance: FAMOTIDINE
     Indication: PROPHYLAXIS
     Dosage: 20 MILLIGRAM
     Route: 042

REACTIONS (4)
  - Hypotension [Unknown]
  - Heart rate increased [Unknown]
  - Dizziness [Unknown]
  - Product administration interrupted [Unknown]
